FAERS Safety Report 4915743-0 (Version None)
Quarter: 2006Q1

REPORT INFORMATION
  Report Type: 
  Country: None (occurrence: None)
  Receive Date: 20060217
  Receipt Date: 20051130
  Transmission Date: 20060701
  Serious: Yes (Other)
  Sender: FDA-Public Use
  Company Number: GBWYE196001DEC05

PATIENT
  Sex: Female
  Weight: 68 kg

DRUGS (8)
  1. ENBREL [Suspect]
     Indication: RHEUMATOID ARTHRITIS
     Route: 058
     Dates: start: 20031118, end: 20040401
  2. PREDNISOLONE [Concomitant]
     Indication: RHEUMATOID ARTHRITIS
     Dosage: 7.5 MG EVERY
  3. LANSOPRAZOLE [Concomitant]
  4. CO-DYDRAMOL [Concomitant]
  5. ASPIRIN [Concomitant]
  6. ATENOLOL [Concomitant]
  7. AMITRIPTYLINE HCL [Concomitant]
  8. RISEDRONATE [Concomitant]
     Indication: OSTEOPOROSIS
     Route: 048

REACTIONS (7)
  - CITROBACTER INFECTION [None]
  - ESCHERICHIA INFECTION [None]
  - INFLUENZA [None]
  - KNEE OPERATION [None]
  - PROTEUS INFECTION [None]
  - SKIN INFECTION [None]
  - URINARY TRACT INFECTION [None]
